FAERS Safety Report 15918396 (Version 1)
Quarter: 2019Q1

REPORT INFORMATION
  Report Type: Spontaneous
  Country: CA (occurrence: CA)
  Receive Date: 20190205
  Receipt Date: 20190205
  Transmission Date: 20190417
  Serious: Yes (Death, Hospitalization, Other)
  Sender: FDA-Public Use
  Company Number: CA-MYLANLABS-2019M1010749

PATIENT
  Age: 33 Year
  Sex: Female

DRUGS (4)
  1. TYLENOL [Concomitant]
     Active Substance: ACETAMINOPHEN
  2. MANERIX [Interacting]
     Active Substance: MOCLOBEMIDE
     Indication: PRODUCT USED FOR UNKNOWN INDICATION
  3. VENLAFAXINE [Suspect]
     Active Substance: VENLAFAXINE HYDROCHLORIDE
     Indication: PRODUCT USED FOR UNKNOWN INDICATION
  4. NOZINAN                            /00038601/ [Concomitant]
     Active Substance: LEVOMEPROMAZINE

REACTIONS (7)
  - Neuroleptic malignant syndrome [Fatal]
  - Toxicity to various agents [Fatal]
  - Drug interaction [Fatal]
  - Serotonin syndrome [Fatal]
  - Completed suicide [Fatal]
  - Intentional overdose [Fatal]
  - Disseminated intravascular coagulation [Fatal]
